FAERS Safety Report 8350677-3 (Version None)
Quarter: 2012Q2

REPORT INFORMATION
  Report Type: 
  Country: None (occurrence: None)
  Receive Date: 20120510
  Receipt Date: 20120507
  Transmission Date: 20120825
  Serious: Yes (Other)
  Sender: FDA-Public Use
  Company Number: US-BAYER-2012-035543

PATIENT
  Age: 37 Year
  Sex: Male
  Weight: 88.435 kg

DRUGS (2)
  1. MAGNEVIST [Suspect]
     Indication: NUCLEAR MAGNETIC RESONANCE IMAGING
     Dosage: 17 ML, ONCE
     Route: 042
     Dates: start: 20120225, end: 20120225
  2. MAGNEVIST [Suspect]
     Indication: MASS

REACTIONS (5)
  - PRURITUS [None]
  - ERYTHEMA [None]
  - SNEEZING [None]
  - URTICARIA [None]
  - RESPIRATORY DISORDER [None]
